FAERS Safety Report 7551028-4 (Version None)
Quarter: 2011Q2

REPORT INFORMATION
  Report Type: 
  Country: None (occurrence: None)
  Receive Date: 20110609
  Receipt Date: 20110603
  Transmission Date: 20111010
  Serious: Yes (Other)
  Sender: FDA-Public Use
  Company Number: 1000021432

PATIENT
  Age: 59 Year
  Sex: Female

DRUGS (14)
  1. BYSTOLIC [Suspect]
     Indication: HYPERTENSION
     Dosage: 5 MG (5 MG,1 IN 1 D),ORAL
     Route: 048
     Dates: start: 20110528
  2. CLONIDINE [Concomitant]
  3. VITAMIN D (VITAMIN D) (VITAMIN D) [Concomitant]
  4. CALCIUM (CALCIUM) (CALCIUM) [Concomitant]
  5. COZAAR [Concomitant]
  6. METFORMIN HCL [Concomitant]
  7. ASA (ACETYLSALICYLIC ACID) (ACETYLSALICYCLIC ACID) [Concomitant]
  8. BYSTOLIC [Suspect]
     Indication: HYPERTENSION
     Dosage: 5 MG (5 MG,1 IN 1 D),ORAL
     Route: 048
     Dates: start: 20100928, end: 20110511
  9. TRIAMTERENE HCTZ (TRIAMTERENE, HYDROCHLOROTHIAZIDE) (TRIAMTERENE HYDRO [Concomitant]
  10. GLUCOTROL [Concomitant]
  11. LIPITOR [Concomitant]
  12. BYETTA [Concomitant]
  13. IRON (IRON) (IRON) [Concomitant]
  14. ZEBETA [Suspect]
     Indication: HYPERTENSION
     Dates: start: 20110512, end: 20110527

REACTIONS (6)
  - GLYCOSYLATED HAEMOGLOBIN INCREASED [None]
  - BLOOD GLUCOSE INCREASED [None]
  - PRURITUS [None]
  - HYPOAESTHESIA [None]
  - MUSCULOSKELETAL STIFFNESS [None]
  - OEDEMA PERIPHERAL [None]
